FAERS Safety Report 14368350 (Version 1)
Quarter: 2018Q1

REPORT INFORMATION
  Report Type: Spontaneous
  Country: US (occurrence: US)
  Receive Date: 20180109
  Receipt Date: 20180109
  Transmission Date: 20180509
  Serious: Yes (Hospitalization)
  Sender: FDA-Public Use
  Company Number: US-MYLANLABS-2017M1083319

PATIENT
  Age: 6 Month
  Sex: Male
  Weight: 6.3 kg

DRUGS (4)
  1. FUROSEMIDE. [Suspect]
     Active Substance: FUROSEMIDE
     Indication: BRONCHOPULMONARY DYSPLASIA
     Dosage: 3MG/KG/DAY
     Route: 065
  2. PREDNISONE. [Concomitant]
     Active Substance: PREDNISONE
     Indication: BRONCHOPULMONARY DYSPLASIA
     Dosage: 0.5 MG/KG, UNK
     Route: 065
  3. CINACALCET HYDROCHLORIDE [Suspect]
     Active Substance: CINACALCET HYDROCHLORIDE
     Indication: HYPERPARATHYROIDISM SECONDARY
     Dosage: 3 MG/DAY (0.4 MG/KG/DAY) IN 2 DIVIDED DOSES
     Route: 048
  4. CHLOROTHIAZIDE. [Concomitant]
     Active Substance: CHLOROTHIAZIDE
     Indication: BRONCHOPULMONARY DYSPLASIA
     Dosage: 22.5MG/KG/DAY
     Route: 065

REACTIONS (4)
  - Hyperparathyroidism secondary [Recovered/Resolved]
  - Off label use [Recovered/Resolved]
  - Hypocalcaemia [Recovered/Resolved]
  - Osteopenia [Recovered/Resolved]
